FAERS Safety Report 4869989-0 (Version None)
Quarter: 2005Q4

REPORT INFORMATION
  Report Type: 
  Country: None (occurrence: None)
  Receive Date: 20051231
  Receipt Date: 20040528
  Transmission Date: 20060501
  Serious: Yes (Hospitalization)
  Sender: FDA-Public Use
  Company Number: FR-BOEHRINGER INGELHEIM PHARMACEUTICALS, INC.-2004-FF-00342FF

PATIENT
  Sex: Male
  Weight: 78 kg

DRUGS (8)
  1. TIPRANAVIR + RITONAVIR CO-ADMIN [Suspect]
     Indication: HIV INFECTION
     Dosage: TPV/RTV 500/200 MG B.I.D.
     Route: 048
     Dates: start: 20030904
  2. TENOFOVIR [Concomitant]
     Indication: HIV INFECTION
     Route: 048
     Dates: start: 20011206
  3. DIDANOSINE [Concomitant]
     Indication: HIV INFECTION
     Route: 048
     Dates: start: 20000901
  4. LAMIVUDINE [Concomitant]
     Indication: HIV INFECTION
     Route: 048
     Dates: start: 20011001
  5. EFAVIRENZ [Concomitant]
     Indication: HIV INFECTION
     Route: 048
     Dates: start: 20030918
  6. BEDELIX [Concomitant]
     Indication: FLATULENCE
     Route: 065
     Dates: start: 20031218
  7. CEPHYL [Concomitant]
     Indication: HEADACHE
     Route: 065
     Dates: start: 20031218
  8. CARBOLEVURE [Concomitant]
     Indication: FLATULENCE
     Route: 065
     Dates: start: 20040219

REACTIONS (5)
  - CHOLANGITIS CHRONIC [None]
  - DIARRHOEA [None]
  - FLATULENCE [None]
  - GINGIVITIS [None]
  - HEPATIC STEATOSIS [None]
